FAERS Safety Report 7691553-9 (Version None)
Quarter: 2011Q3

REPORT INFORMATION
  Report Type: 
  Country: None (occurrence: None)
  Receive Date: 20110818
  Receipt Date: 20110804
  Transmission Date: 20111222
  Serious: Yes (Other)
  Sender: FDA-Public Use
  Company Number: PHHY2011BR72612

PATIENT
  Sex: Male

DRUGS (3)
  1. EXFORGE [Suspect]
     Indication: HYPERTENSION
     Dosage: 1 DF(80/5 MG), DAILY
     Route: 048
  2. FORMOTEROL FUMARATE [Suspect]
     Indication: ASTHMA
     Dosage: 1 DF(12/400 MCG), DAILY
  3. EXFORGE [Suspect]
     Indication: HYPERTENSION
     Dosage: 1 DF(80/5), DAILY
     Route: 048

REACTIONS (4)
  - VENOUS OCCLUSION [None]
  - DIABETES MELLITUS [None]
  - ANGINA PECTORIS [None]
  - HYPERTENSION [None]
